FAERS Safety Report 14562000 (Version 1)
Quarter: 2018Q1

REPORT INFORMATION
  Report Type: Spontaneous
  Country: US (occurrence: US)
  Receive Date: 20180221
  Receipt Date: 20180221
  Transmission Date: 20180509
  Serious: Yes (Other)
  Sender: FDA-Public Use
  Company Number: None

PATIENT
  Age: 52 Year
  Sex: Female
  Weight: 108 kg

DRUGS (10)
  1. VALSARTAN. [Concomitant]
     Active Substance: VALSARTAN
  2. PALIPERIDONE. [Concomitant]
     Active Substance: PALIPERIDONE
  3. ARMOUR THYROID [Concomitant]
     Active Substance: THYROID, PORCINE
  4. GENERIC DULOXETINE CITRON PHARMA LLC 60M G [Suspect]
     Active Substance: DULOXETINE
     Indication: SCHIZOAFFECTIVE DISORDER
     Dosage: ?          QUANTITY:88 CAPSULE(S);?
     Route: 048
     Dates: start: 20180113, end: 20180220
  5. DICLOFENAC [Concomitant]
     Active Substance: DICLOFENAC
  6. ATORVASTATIN [Concomitant]
     Active Substance: ATORVASTATIN
  7. FISH OIL [Concomitant]
     Active Substance: FISH OIL
  8. BYSTOLIC [Concomitant]
     Active Substance: NEBIVOLOL HYDROCHLORIDE
  9. GENERIC DULOXETINE CITRON PHARMA LLC 60M G [Suspect]
     Active Substance: DULOXETINE
     Indication: DEPRESSION
     Dosage: ?          QUANTITY:88 CAPSULE(S);?
     Route: 048
     Dates: start: 20180113, end: 20180220
  10. DIOVAN [Concomitant]
     Active Substance: VALSARTAN

REACTIONS (3)
  - Product substitution issue [None]
  - Withdrawal syndrome [None]
  - Drug ineffective [None]

NARRATIVE: CASE EVENT DATE: 20180113
